FAERS Safety Report 10798634 (Version 1)
Quarter: 2015Q1

REPORT INFORMATION
  Report Type: Spontaneous
  Country: CH (occurrence: CH)
  Receive Date: 20150216
  Receipt Date: 20150216
  Transmission Date: 20150721
  Serious: Yes (Hospitalization)
  Sender: FDA-Public Use
  Company Number: CH-BAYER-2015-016808

PATIENT
  Age: 79 Year
  Sex: Female

DRUGS (18)
  1. NITRODERM [Suspect]
     Active Substance: NITROGLYCERIN
     Indication: PULMONARY OEDEMA
     Dosage: 3 DF, QD
     Route: 062
     Dates: start: 20140425
  2. ADALAT [Suspect]
     Active Substance: NIFEDIPINE
     Indication: PULMONARY OEDEMA
     Dosage: 20 MG, UNK
     Route: 042
     Dates: start: 20140425, end: 20140425
  3. INSULIN [Concomitant]
     Active Substance: INSULIN NOS
     Dosage: UNK
  4. MORPHIN [Concomitant]
     Active Substance: MORPHINE
     Dosage: UNK
  5. LASIX [Suspect]
     Active Substance: FUROSEMIDE
     Indication: PULMONARY OEDEMA
     Dosage: 40 MG, BID
     Route: 042
     Dates: start: 20140425, end: 20140425
  6. TOREM [Suspect]
     Active Substance: TORSEMIDE
     Indication: PULMONARY OEDEMA
     Dosage: 50 MG, QD
     Route: 048
     Dates: start: 20140426, end: 20140426
  7. BRILIQUE [Concomitant]
     Active Substance: TICAGRELOR
  8. AUGMENTIN [Concomitant]
     Active Substance: AMOXICILLIN\CLAVULANATE POTASSIUM
     Dosage: UNK
  9. METOLAZONE. [Suspect]
     Active Substance: METOLAZONE
     Indication: PULMONARY OEDEMA
     Dosage: 2.5 MG, QD
     Route: 048
     Dates: start: 20140426, end: 20140426
  10. TRIATEC [Suspect]
     Active Substance: RAMIPRIL
     Indication: PULMONARY OEDEMA
     Dosage: 1 DF, QD
     Route: 048
     Dates: start: 20140426, end: 20140426
  11. ATORVASTATIN [Concomitant]
     Active Substance: ATORVASTATIN
     Dosage: UNK
  12. PHYSIOTENS [Concomitant]
     Active Substance: MOXONIDINE
  13. REMERON [Concomitant]
     Active Substance: MIRTAZAPINE
  14. JANUVIA [Concomitant]
     Active Substance: SITAGLIPTIN PHOSPHATE
     Dosage: UNK
  15. TOREM [Suspect]
     Active Substance: TORSEMIDE
     Indication: PULMONARY OEDEMA
     Dosage: UNK
  16. ASPIRIN CARDIO [Concomitant]
     Active Substance: ASPIRIN
     Dosage: UNK
  17. DILATREND [Concomitant]
     Active Substance: CARVEDILOL
     Dosage: UNK
  18. PANTOZOL [Concomitant]
     Active Substance: PANTOPRAZOLE SODIUM

REACTIONS (5)
  - Cerebral hypoperfusion [Recovered/Resolved]
  - Muscular weakness [Recovered/Resolved]
  - Coma scale abnormal [Recovered/Resolved]
  - Somnolence [Recovered/Resolved]
  - Acute kidney injury [Recovered/Resolved]

NARRATIVE: CASE EVENT DATE: 20140426
